FAERS Safety Report 6424550-1 (Version None)
Quarter: 2009Q4

REPORT INFORMATION
  Report Type: 
  Country: None (occurrence: None)
  Receive Date: 20091030
  Receipt Date: 20091030
  Transmission Date: 20100525
  Serious: Yes (Hospitalization)
  Sender: FDA-Public Use
  Company Number: None

PATIENT
  Age: 81 Year

DRUGS (1)
  1. INDOMETHACIN [Suspect]
     Indication: GOUT
     Dosage: 75 MG EVERY DAY PO
     Route: 048
     Dates: start: 20081003, end: 20081012

REACTIONS (1)
  - CARDIAC FAILURE CONGESTIVE [None]
